FAERS Safety Report 10290269 (Version 1)
Quarter: 2014Q3

REPORT INFORMATION
  Report Type: Spontaneous
  Country: US (occurrence: None)
  Receive Date: 20140708
  Receipt Date: 20140708
  Transmission Date: 20150326
  Serious: Yes (Other)
  Sender: FDA-Public Use
  Company Number: FK201402583

PATIENT
  Age: 24 Year
  Sex: Female

DRUGS (2)
  1. BUPIVACAINE [Suspect]
     Active Substance: BUPIVACAINE
     Indication: OCCIPITAL NEURALGIA
     Dosage: 2 DOSES, GREATER AND LESSER OCCIPITAL NERVE BLOCK
  2. TRIAMCINOLONE ACETONIDE. [Suspect]
     Active Substance: TRIAMCINOLONE ACETONIDE
     Indication: OCCIPITAL NEURALGIA
     Dosage: 2 DOSS, GREATER AND LESSER OCCIPITAL NERVE BLOCK

REACTIONS (4)
  - Refusal of treatment by patient [None]
  - VIIth nerve paralysis [None]
  - Sinusitis [None]
  - Anxiety [None]
